FAERS Safety Report 11549807 (Version 2)
Quarter: 2015Q4

REPORT INFORMATION
  Report Type: Spontaneous
  Country: US (occurrence: US)
  Receive Date: 20150924
  Receipt Date: 20151202
  Transmission Date: 20160304
  Serious: No
  Sender: FDA-Public Use
  Company Number: US-CELGENEUS-USA-2015093597

PATIENT
  Sex: Female

DRUGS (1)
  1. OTEZLA [Suspect]
     Active Substance: APREMILAST
     Indication: PSORIASIS
     Dosage: 60 MILLIGRAM
     Route: 048

REACTIONS (6)
  - Vomiting [Unknown]
  - Nausea [Unknown]
  - Diarrhoea [Recovered/Resolved]
  - Depression [Unknown]
  - Lactose intolerance [Unknown]
  - Headache [Recovered/Resolved]
